FAERS Safety Report 13986271 (Version 3)
Quarter: 2017Q4

REPORT INFORMATION
  Report Type: Report from Study
  Country: US (occurrence: US)
  Receive Date: 20170919
  Receipt Date: 20171110
  Transmission Date: 20180321
  Serious: Yes (Hospitalization)
  Sender: FDA-Public Use
  Company Number: US-UCBSA-2017036878

PATIENT
  Sex: Male
  Weight: 77 kg

DRUGS (6)
  1. LACOSAMIDE. [Suspect]
     Active Substance: LACOSAMIDE
     Indication: SEIZURE
     Dosage: 100 MG, 2X/DAY (BID)
     Route: 048
     Dates: start: 2013
  2. KEPPRA [Suspect]
     Active Substance: LEVETIRACETAM
     Dosage: 2X/DAY (BID), 1000 MG ONE TAB IN AM AND TWO TABS IN PM
     Route: 048
     Dates: start: 201709
  3. VERAPAMIL [Concomitant]
     Active Substance: VERAPAMIL HYDROCHLORIDE
     Indication: BLOOD PRESSURE MEASUREMENT
     Dosage: UNK
     Route: 048
     Dates: end: 201709
  4. VITAMIN D3 [Concomitant]
     Active Substance: CHOLECALCIFEROL
     Indication: SUPPLEMENTATION THERAPY
     Dosage: UNK
     Route: 048
  5. KEPPRA [Suspect]
     Active Substance: LEVETIRACETAM
     Indication: SEIZURE
     Dosage: 2X/DAY (BID), 1000 MG ONE TAB IN AM AND TWO TABS IN PM
     Route: 048
     Dates: start: 2008
  6. HYDROCODONE [Concomitant]
     Active Substance: HYDROCODONE
     Indication: HEADACHE
     Dosage: UNK, AS NEEDED (PRN)
     Route: 048

REACTIONS (2)
  - Seizure [Recovered/Resolved]
  - Drug dose omission [Unknown]
